FAERS Safety Report 7447369-1 (Version None)
Quarter: 2011Q2

REPORT INFORMATION
  Report Type: 
  Country: None (occurrence: None)
  Receive Date: 20110429
  Receipt Date: 20110214
  Transmission Date: 20111010
  Serious: No
  Sender: FDA-Public Use
  Company Number: US-ASTRAZENECA-2011SE08624

PATIENT
  Age: 86 Year
  Sex: Female

DRUGS (4)
  1. DIOVAN [Concomitant]
     Indication: HYPERTENSION
  2. ACTOS [Concomitant]
     Indication: DIABETES MELLITUS
  3. NEXIUM [Suspect]
     Indication: GASTROOESOPHAGEAL REFLUX DISEASE
     Route: 048
     Dates: start: 20090101
  4. PRILOSEC OTC [Suspect]
     Route: 048
     Dates: start: 20101101

REACTIONS (7)
  - DIARRHOEA [None]
  - ABDOMINAL DISTENSION [None]
  - SURGERY [None]
  - DRUG DOSE OMISSION [None]
  - DYSPEPSIA [None]
  - HEADACHE [None]
  - ABDOMINAL PAIN UPPER [None]
